FAERS Safety Report 7940088-4 (Version None)
Quarter: 2011Q4

REPORT INFORMATION
  Report Type: 
  Country: None (occurrence: None)
  Receive Date: 20111125
  Receipt Date: 20111114
  Transmission Date: 20120403
  Serious: Yes (Hospitalization)
  Sender: FDA-Public Use
  Company Number: PHHO2011US019595

PATIENT
  Age: 49 Year
  Sex: Female
  Weight: 55.7 kg

DRUGS (9)
  1. FOLFOX-6 [Concomitant]
     Dosage: UNK
     Dates: start: 20110603, end: 20111111
  2. IMODIUM [Concomitant]
  3. AFINITOR [Suspect]
     Dosage: 5 MG, UNK
     Route: 048
     Dates: start: 20110603
  4. COMPAZINE [Concomitant]
  5. FOLFOX-6 [Concomitant]
     Indication: COLORECTAL CANCER
     Dosage: UNK
     Dates: start: 20101117, end: 20110316
  6. LOMOTIL [Concomitant]
  7. AFINITOR [Suspect]
     Indication: COLORECTAL CANCER
     Dosage: 5 MG, UNK
     Route: 048
     Dates: start: 20101117, end: 20110316
  8. ZOFRAN [Concomitant]
  9. ATIVAN [Concomitant]

REACTIONS (1)
  - PANCREATITIS ACUTE [None]
